FAERS Safety Report 8483612-8 (Version None)
Quarter: 2012Q3

REPORT INFORMATION
  Report Type: 
  Country: None (occurrence: None)
  Receive Date: 20120702
  Receipt Date: 20120622
  Transmission Date: 20120928
  Serious: Yes (Death)
  Sender: FDA-Public Use
  Company Number: JP-MERCK-1206USA04769

PATIENT
  Age: 63 Year
  Sex: Male

DRUGS (2)
  1. EPZICOM [Concomitant]
     Indication: HIV INFECTION
     Route: 048
     Dates: start: 20111111, end: 20111215
  2. ISENTRESS [Suspect]
     Route: 048
     Dates: start: 20111111, end: 20111215

REACTIONS (1)
  - RENAL FAILURE ACUTE [None]
